FAERS Safety Report 8384539-2 (Version None)
Quarter: 2012Q2

REPORT INFORMATION
  Report Type: 
  Country: None (occurrence: None)
  Receive Date: 20120524
  Receipt Date: 20120521
  Transmission Date: 20120825
  Serious: Yes (Hospitalization, Other)
  Sender: FDA-Public Use
  Company Number: US-TEVA-339411USA

PATIENT
  Age: 41 Year
  Sex: Male

DRUGS (4)
  1. DULOXETINE HYDROCHLORIDE [Concomitant]
     Route: 065
  2. DESVENLAFAXINE [Concomitant]
     Route: 065
  3. BACLOFEN [Suspect]
     Indication: SUICIDE ATTEMPT
     Dosage: ^AT LEAST 600MG^
     Route: 048
  4. BACLOFEN [Suspect]
     Route: 065

REACTIONS (11)
  - INTENTIONAL OVERDOSE [None]
  - DRUG WITHDRAWAL SYNDROME [None]
  - HYPERREFLEXIA [None]
  - DELIRIUM [None]
  - AUTONOMIC NERVOUS SYSTEM IMBALANCE [None]
  - TOXICITY TO VARIOUS AGENTS [None]
  - AREFLEXIA [None]
  - COMA [None]
  - SUICIDE ATTEMPT [None]
  - SEROTONIN SYNDROME [None]
  - MUSCLE CONTRACTIONS INVOLUNTARY [None]
